FAERS Safety Report 11750736 (Version 2)
Quarter: 2016Q1

REPORT INFORMATION
  Report Type: Spontaneous
  Country: US (occurrence: US)
  Receive Date: 20151118
  Receipt Date: 20160104
  Transmission Date: 20160525
  Serious: Yes (Other)
  Sender: FDA-Public Use
  Company Number: US-SA-2015SA171760

PATIENT
  Sex: Male

DRUGS (2)
  1. ICY HOT MEDICATED, ADVANCED RELIEF [Suspect]
     Active Substance: MENTHOL
     Indication: MUSCLE STRAIN
     Route: 065
     Dates: start: 20151018
  2. ICY HOT MEDICATED, ADVANCED RELIEF [Suspect]
     Active Substance: MENTHOL
     Indication: LIGAMENT SPRAIN
     Route: 065
     Dates: start: 20151018

REACTIONS (4)
  - Burns second degree [Unknown]
  - Pain in extremity [Not Recovered/Not Resolved]
  - Blister [Not Recovered/Not Resolved]
  - Erythema [Not Recovered/Not Resolved]
